FAERS Safety Report 4974121-9 (Version None)
Quarter: 2006Q1

REPORT INFORMATION
  Report Type: 
  Country: None (occurrence: None)
  Receive Date: 20060130
  Receipt Date: 20050628
  Transmission Date: 20060701
  Serious: No
  Sender: FDA-Public Use
  Company Number: COT_0282_2005

PATIENT
  Age: 40 Year
  Sex: Female
  Weight: 59.4212 kg

DRUGS (20)
  1. VENTAVIS [Suspect]
     Indication: PULMONARY HYPERTENSION
     Dosage: 2.5 MCG ONCE IH
     Dates: start: 20050607, end: 20050607
  2. VENTAVIS [Suspect]
     Indication: PULMONARY HYPERTENSION
     Dosage: 5 MCG 6TO9X/DAY IH
     Dates: start: 20050607
  3. VENTAVIS [Suspect]
     Indication: PULMONARY HYPERTENSION
     Dosage: 5 MCG 6TO9X/DAY IH
     Dates: start: 20050607
  4. VENTAVIS [Suspect]
     Indication: PULMONARY HYPERTENSION
     Dosage: 5 MCG 6TO9X/DAY IH
     Dates: start: 20050607
  5. VENTAVIS [Suspect]
     Indication: PULMONARY HYPERTENSION
     Dosage: 5 MCG 6TO9X/DAY IH
     Dates: start: 20050607
  6. VENTAVIS [Suspect]
     Indication: PULMONARY HYPERTENSION
     Dosage: 5 MCG 6TO9X/DAY IH
     Dates: start: 20050607
  7. FUROSEMIDE [Concomitant]
  8. NEXIUM [Concomitant]
  9. CARAFATE [Concomitant]
  10. PREDNISONE [Concomitant]
  11. AMIODARONE HCL [Concomitant]
  12. ASPIRIN [Concomitant]
  13. TOPROL-XL [Concomitant]
  14. NITROGLYCERIN [Concomitant]
  15. ONDANSETRON HYDROCHLORIDE [Concomitant]
  16. ATROVENT [Concomitant]
  17. TUMS [Concomitant]
  18. DIGOXIN [Concomitant]
  19. PLAQUENIL [Concomitant]
  20. ALPRAZOLAM [Concomitant]

REACTIONS (5)
  - CYANOSIS [None]
  - FLUSHING [None]
  - HEADACHE [None]
  - NAUSEA [None]
  - VOMITING [None]
